FAERS Safety Report 14069441 (Version 2)
Quarter: 2017Q4

REPORT INFORMATION
  Report Type: Spontaneous
  Country: JP (occurrence: JP)
  Receive Date: 20171010
  Receipt Date: 20171027
  Transmission Date: 20180321
  Serious: Yes (Other)
  Sender: FDA-Public Use
  Company Number: JP-GLAXOSMITHKLINE-JP2017JPN152757

PATIENT
  Age: 45 Year
  Sex: Male

DRUGS (10)
  1. OKINAZOLE [Concomitant]
     Indication: TINEA PEDIS
     Dosage: UNK
     Dates: start: 20170829
  2. ZINC OXIDE SIMPLE OINTMENT [Concomitant]
     Active Substance: ZINC OXIDE
     Indication: TINEA PEDIS
     Dosage: UNK
     Dates: start: 20170829
  3. ZINNAT [Suspect]
     Active Substance: CEFUROXIME AXETIL
     Dosage: 250 MG, TID
     Route: 048
     Dates: start: 20170911, end: 20170915
  4. ZINNAT [Suspect]
     Active Substance: CEFUROXIME AXETIL
     Dosage: 250 MG, TID
     Route: 048
     Dates: start: 20170925, end: 20170929
  5. NIFLAN [Concomitant]
     Active Substance: PRANOPROFEN
     Dosage: 75 MG, TID
     Dates: start: 20170911, end: 20170915
  6. NIFLAN [Concomitant]
     Active Substance: PRANOPROFEN
     Dosage: 75 MG, TID
     Dates: start: 20170925, end: 20170929
  7. NIFLAN [Concomitant]
     Active Substance: PRANOPROFEN
     Dosage: 75 MG, TID
     Dates: start: 20170930, end: 20171004
  8. ZINNAT [Suspect]
     Active Substance: CEFUROXIME AXETIL
     Indication: LYMPHANGITIS
     Dosage: 250 MG, TID
     Route: 048
     Dates: start: 20170829, end: 20170904
  9. ZINNAT [Suspect]
     Active Substance: CEFUROXIME AXETIL
     Dosage: 250 MG, TID
     Route: 048
     Dates: start: 20170930, end: 20171004
  10. NIFLAN [Concomitant]
     Active Substance: PRANOPROFEN
     Indication: LYMPHANGITIS
     Dosage: 75 MG, TID
     Dates: start: 20170829, end: 20170904

REACTIONS (2)
  - Haematochezia [Recovered/Resolved]
  - Pseudomembranous colitis [Recovered/Resolved]

NARRATIVE: CASE EVENT DATE: 201710
